FAERS Safety Report 9682633 (Version 1)
Quarter: 2013Q4

REPORT INFORMATION
  Report Type: Spontaneous
  Country: IT (occurrence: IT)
  Receive Date: 20131112
  Receipt Date: 20131112
  Transmission Date: 20140711
  Serious: Yes (Other)
  Sender: FDA-Public Use
  Company Number: IT-009507513-1311ITA003488

PATIENT
  Age: 73 Year
  Sex: Male
  Weight: 58 kg

DRUGS (4)
  1. REMERON [Suspect]
     Indication: PSYCHOTIC DISORDER
     Dosage: 30 MG, QD
     Route: 048
     Dates: start: 2008, end: 201309
  2. NOZINAN [Concomitant]
     Indication: PSYCHOTIC DISORDER
     Dosage: 25 MG, UNK
     Route: 048
     Dates: start: 2008
  3. AKINETON TABLETS [Concomitant]
     Indication: PSYCHOTIC DISORDER
     Dosage: 4 MG, UNK
     Route: 048
     Dates: start: 2008
  4. TAVOR (LORAZEPAM) [Concomitant]
     Indication: PSYCHOTIC DISORDER
     Dosage: 1 MG, UNK
     Route: 048

REACTIONS (2)
  - Psychomotor hyperactivity [Recovered/Resolved]
  - Psychomotor hyperactivity [Recovered/Resolved]
